FAERS Safety Report 6686654-8 (Version None)
Quarter: 2010Q2

REPORT INFORMATION
  Report Type: 
  Country: None (occurrence: None)
  Receive Date: 20100416
  Receipt Date: 20100416
  Transmission Date: 20101027
  Serious: No
  Sender: FDA-Public Use
  Company Number: None

PATIENT
  Age: 20 Year
  Sex: Female

DRUGS (2)
  1. CROFAB [Suspect]
     Indication: SNAKE BITE
     Dosage: CROFAB 4 VIALS IV
     Route: 042
     Dates: start: 20100406
  2. DILAUDID [Suspect]
     Dosage: DILAUDID 1MG IV
     Route: 042
     Dates: start: 20100406

REACTIONS (1)
  - PRURITUS [None]
